FAERS Safety Report 6614932 (Version 2)
Quarter: 2020Q3

REPORT INFORMATION
  Report Type: Spontaneous
  Country: JP (occurrence: None)
  Receive Date: 20080402
  Receipt Date: 20080528
  Transmission Date: 20201104
  Serious: Yes (Hospitalization)
  Sender: FDA-Public Use
  Company Number: E2090-00412-SPO-JP

PATIENT
  Age: 11 Year
  Sex: Male

DRUGS (7)
  1. SELENICA?R [Suspect]
     Active Substance: VALPROATE SODIUM
     Indication: SEIZURE
     Dosage: 300 MG, ORAL
     Route: 048
     Dates: start: 20070703, end: 20070703
  2. PHENYTOIN. [Suspect]
     Active Substance: PHENYTOIN
     Indication: SEIZURE
     Dosage: 500 MG; 200 MG; 100 MG
     Dates: start: 20070630, end: 20070702
  3. DORMICUM (MIDAZOLAM HYDROCHLORIDE) [Suspect]
     Active Substance: MIDAZOLAM HYDROCHLORIDE
     Indication: SEIZURE
     Dosage: 3 MG; INTRAVENOUS
     Dates: start: 20070629, end: 20070629
  4. ZONISAMIDE. [Suspect]
     Active Substance: ZONISAMIDE
     Indication: SEIZURE
     Dosage: 80 MG, ORAL; 120 MG, ORAL; 150 MG, ORAL; 180 MG, ORAL; 210 MG, ORAL; 250 MG, ORAL
     Route: 048
     Dates: start: 20070804, end: 20070815
  5. DEPAKENE [Suspect]
     Active Substance: VALPROIC ACID
     Indication: SEIZURE
     Dosage: 600 MG, ORAL
     Route: 048
     Dates: start: 20070703, end: 20070711
  6. PHENOBARBITAL SODIUM. [Suspect]
     Active Substance: PHENOBARBITAL SODIUM
     Indication: SEIZURE
     Dosage: 400 MG, RECTAL; 150 MG, RECTAL
     Route: 054
     Dates: start: 20070705, end: 20070705
  7. THIOPENTAL SODIUM. [Suspect]
     Active Substance: THIOPENTAL SODIUM
     Indication: SEIZURE
     Dosage: 50 MG
     Dates: start: 20070630, end: 20070630

REACTIONS (11)
  - Pyrexia [None]
  - Alanine aminotransferase increased [None]
  - Lymphocyte stimulation test positive [None]
  - Loss of consciousness [None]
  - Drug reaction with eosinophilia and systemic symptoms [None]
  - Dermatitis exfoliative [None]
  - Seizure [None]
  - Encephalitis [None]
  - Encephalopathy [None]
  - Hepatic function abnormal [None]
  - Hepatic enzyme increased [None]

NARRATIVE: CASE EVENT DATE: 20070913
